FAERS Safety Report 24435956 (Version 1)
Quarter: 2024Q4

REPORT INFORMATION
  Report Type: Spontaneous
  Country: US (occurrence: US)
  Receive Date: 20241015
  Receipt Date: 20241015
  Transmission Date: 20250114
  Serious: No
  Sender: SPROUT PHARMACEUTICALS, INC.
  Company Number: US-Sprout Pharmaceuticals, Inc.-2024SP000102

PATIENT
  Age: 36 Year
  Sex: Female

DRUGS (3)
  1. ADDYI [Suspect]
     Active Substance: FLIBANSERIN
     Indication: Product used for unknown indication
     Route: 048
     Dates: start: 20240314
  2. CREATINE MONOHYDRATE [Concomitant]
     Active Substance: CREATINE MONOHYDRATE
     Indication: Product used for unknown indication
  3. MICROGESTIIN BIRTH CONTROL [Concomitant]
     Indication: Contraception

REACTIONS (2)
  - Insomnia [Unknown]
  - Rapid eye movements sleep abnormal [Unknown]

NARRATIVE: CASE EVENT DATE: 20240321
